FAERS Safety Report 20108928 (Version 4)
Quarter: 2021Q4

REPORT INFORMATION
  Report Type: Spontaneous
  Country: AR (occurrence: AR)
  Receive Date: 20211124
  Receipt Date: 20211230
  Transmission Date: 20220303
  Serious: Yes (Death, Other)
  Sender: FDA-Public Use
  Company Number: AR-NOVARTISPH-NVSC2021AR262437

PATIENT
  Age: 33 Year
  Sex: Female

DRUGS (7)
  1. RIBOCICLIB [Suspect]
     Active Substance: RIBOCICLIB
     Indication: Hormone receptor positive breast cancer
     Dosage: 600 MG, QD, (DAY 1-21, 7 DAYS OFF)
     Route: 048
     Dates: start: 20180719, end: 20200618
  2. RIBOCICLIB [Suspect]
     Active Substance: RIBOCICLIB
     Indication: Metastases to lymph nodes
     Dosage: 600 MG (DAY 1-21)
     Route: 065
  3. RIBOCICLIB [Suspect]
     Active Substance: RIBOCICLIB
     Indication: Metastases to bone
  4. LETROZOLE [Suspect]
     Active Substance: LETROZOLE
     Indication: Hormone receptor positive breast cancer
     Dosage: 2.5 MG, QD
     Route: 048
     Dates: start: 20180719
  5. LETROZOLE [Suspect]
     Active Substance: LETROZOLE
     Indication: Metastases to lymph nodes
     Dosage: 2.5 MG, QD
     Route: 065
  6. LETROZOLE [Suspect]
     Active Substance: LETROZOLE
     Indication: Metastases to bone
  7. FILGRASTIM [Concomitant]
     Active Substance: FILGRASTIM
     Indication: Product used for unknown indication
     Dosage: 350 UG
     Route: 065
     Dates: start: 201901

REACTIONS (8)
  - COVID-19 [Fatal]
  - Hormone receptor positive breast cancer [Fatal]
  - Malignant neoplasm progression [Fatal]
  - Neutropenia [Unknown]
  - Bone marrow infiltration [Unknown]
  - Anaemia [Unknown]
  - Thrombocytopenia [Unknown]
  - Metastases to liver [Unknown]

NARRATIVE: CASE EVENT DATE: 20200601
